FAERS Safety Report 8374912-0 (Version None)
Quarter: 2012Q2

REPORT INFORMATION
  Report Type: 
  Country: None (occurrence: None)
  Receive Date: 20120521
  Receipt Date: 20120515
  Transmission Date: 20120825
  Serious: Yes (Other)
  Sender: FDA-Public Use
  Company Number: US-AMGEN-USASP2012030464

PATIENT
  Sex: Female

DRUGS (7)
  1. LASIX [Concomitant]
  2. PROLIA [Suspect]
     Indication: OSTEOPOROSIS POSTMENOPAUSAL
     Dates: start: 20120301
  3. THYROID [Concomitant]
  4. ZEMPLAR [Concomitant]
  5. COUMADIN [Concomitant]
  6. COREG [Concomitant]
  7. FEMARA [Concomitant]

REACTIONS (2)
  - HYPOCALCAEMIA [None]
  - RENAL FAILURE [None]
